FAERS Safety Report 20805574 (Version 1)
Quarter: 2022Q2

REPORT INFORMATION
  Report Type: Report from Study
  Country: TW (occurrence: TW)
  Receive Date: 20220510
  Receipt Date: 20220510
  Transmission Date: 20220720
  Serious: Yes (Other)
  Sender: FDA-Public Use
  Company Number: TW-SUN PHARMACEUTICAL INDUSTRIES LTD-2022RR-336076

PATIENT
  Age: 49 Year
  Sex: Female

DRUGS (7)
  1. IRINOTECAN [Suspect]
     Active Substance: IRINOTECAN
     Indication: Adenocarcinoma metastatic
     Dosage: 150 MILLIGRAM/SQ. METER INFUSION IN 250 ML OF 0.9% NACL OVER 90MIN
     Route: 042
  2. OXALIPLATIN [Suspect]
     Active Substance: OXALIPLATIN
     Indication: Adenocarcinoma metastatic
     Dosage: 85 MILLIGRAM/SQ. METER INFUSION IN 250ML OF 5% GLUCOSE OVER 120MIN
     Route: 042
  3. CAPECITABINE [Suspect]
     Active Substance: CAPECITABINE
     Indication: Adenocarcinoma metastatic
     Dosage: 1500 MILLIGRAM, BID
     Route: 048
  4. PACLITAXEL [Suspect]
     Active Substance: PACLITAXEL
     Indication: Adenocarcinoma metastatic
     Dosage: 175 MILLIGRAM/SQ. METER, INFUSION IN 500 ML OF 5% GLUCOSE OVER 180 MIN, DAY 2
     Route: 042
  5. CARBOPLATIN [Suspect]
     Active Substance: CARBOPLATIN
     Indication: Adenocarcinoma metastatic
     Dosage: AUC 5 INFUSION IN 250ML OF 5% GLUCOSE OVER 120 MIN, DAY 2
     Route: 042
  6. BEVACIZUMAB [Suspect]
     Active Substance: BEVACIZUMAB
     Indication: Adenocarcinoma metastatic
     Dosage: 600 MILLIGRAM, INFUSION IN 100 ML OF 0.9% NACL OVER 90 MIN, DAY 1
     Route: 042
  7. FLUOROURACIL [Suspect]
     Active Substance: FLUOROURACIL
     Indication: Adenocarcinoma metastatic
     Dosage: 2400 MILLIGRAM/SQ. METER INFUSION IN 500 ML OF 0.9% NACL OVER 46H
     Route: 042

REACTIONS (2)
  - Therapeutic product effect incomplete [Unknown]
  - Malignant neoplasm progression [Unknown]
